FAERS Safety Report 6053080-4 (Version None)
Quarter: 2009Q1

REPORT INFORMATION
  Report Type: 
  Country: None (occurrence: None)
  Receive Date: 20090127
  Receipt Date: 20090122
  Transmission Date: 20090719
  Serious: Yes (Hospitalization)
  Sender: FDA-Public Use
  Company Number: AU-BRISTOL-MYERS SQUIBB COMPANY-14479968

PATIENT
  Age: 61 Year
  Sex: Female
  Weight: 97 kg

DRUGS (3)
  1. BLINDED: BRIVANIB ALANINATE [Suspect]
     Indication: COLORECTAL CANCER METASTATIC
     Dosage: INITIATED ON 29-DEC-2008.
     Route: 048
     Dates: start: 20090119
  2. CETUXIMAB [Suspect]
     Indication: COLORECTAL CANCER METASTATIC
     Dosage: INITIATED ON 29-DEC-2008
     Route: 042
     Dates: start: 20090119, end: 20090119
  3. BLINDED: PLACEBO [Suspect]
     Indication: COLORECTAL CANCER METASTATIC
     Dosage: INITIATED ON 29-DEC-2009
     Route: 048
     Dates: start: 20090119

REACTIONS (1)
  - PARTIAL SEIZURES [None]
